FAERS Safety Report 9097707 (Version 2)
Quarter: 2013Q1

REPORT INFORMATION
  Report Type: Spontaneous
  Country: US (occurrence: US)
  Receive Date: 20130212
  Receipt Date: 20130325
  Transmission Date: 20140127
  Serious: Yes (Death)
  Sender: FDA-Public Use
  Company Number: US-BRISTOL-MYERS SQUIBB COMPANY-17370255

PATIENT
  Age: 63 Year
  Sex: Male

DRUGS (20)
  1. ONGLYZA TABS 5 MG [Suspect]
     Indication: TYPE 2 DIABETES MELLITUS
     Route: 048
     Dates: start: 20101001
  2. BENADRYL [Concomitant]
     Dosage: AT BED TIME ?CAPS
     Route: 048
  3. CLONAZEPAM [Concomitant]
     Dosage: TABS
     Route: 048
  4. CYCLOBENZAPRINE HCL [Concomitant]
     Dosage: 10MG
     Route: 048
  5. DOXEPIN HCL [Concomitant]
     Dosage: CAPS
     Route: 048
  6. DULCOLAX [Concomitant]
     Dosage: 10MG,SUPPOSITORY,RECTAL,1,2 TIMES A DAY
     Route: 048
  7. FLONASE [Concomitant]
     Dosage: SPRAY
     Route: 045
  8. FLUOXETINE HCL [Concomitant]
     Dosage: CAPS?40MG ONCE PER DAY
     Route: 048
  9. GABAPENTINE [Concomitant]
     Dosage: CAPS
     Route: 048
  10. GLIMEPIRIDE [Concomitant]
     Dosage: TABS
     Route: 048
  11. KLOR-CON M [Concomitant]
     Dosage: TABS
     Route: 048
  12. LANTUS [Concomitant]
     Dosage: LANTUS SOLOSTAR PEN?100UNITS/ML SOLUTION,40UNITS ONCE A DAY
     Route: 058
  13. LASIX [Concomitant]
     Dosage: TABS
     Route: 048
  14. LORTAB [Concomitant]
     Indication: PAIN
     Dosage: 500MG-10MG?TABS
     Route: 048
  15. NABUMETONE [Concomitant]
     Indication: PAIN
     Dosage: AS NEEDED
     Route: 048
  16. OMEPRAZOLE [Concomitant]
     Dosage: DELAYED RELEASE CAPS?40MG
     Route: 048
  17. PRAVASTATIN SODIUM [Concomitant]
     Route: 048
  18. TRIAMCINOLONE ACETONIDE [Concomitant]
     Route: 061
  19. TRIFLUOPERAZINE HCL [Concomitant]
     Route: 048
  20. VITAMIN B12 [Concomitant]
     Dosage: 1DF:1000 MCG/ML

REACTIONS (2)
  - Death [Fatal]
  - Back pain [Unknown]
